FAERS Safety Report 5900365-5 (Version None)
Quarter: 2008Q3

REPORT INFORMATION
  Report Type: 
  Country: None (occurrence: None)
  Receive Date: 20080926
  Receipt Date: 20080915
  Transmission Date: 20090109
  Serious: Yes (Hospitalization, Other)
  Sender: FDA-Public Use
  Company Number: US-ELI_LILLY_AND_COMPANY-US200809004054

PATIENT
  Sex: Female

DRUGS (7)
  1. FORTEO [Suspect]
     Dosage: 20 UG, DAILY (1/D)
     Route: 058
     Dates: start: 20041101, end: 20061101
  2. ENBREL [Concomitant]
     Indication: RHEUMATOID ARTHRITIS
     Dosage: 50 MG, WEEKLY (1/W)
     Route: 058
     Dates: start: 20021112
  3. METHOTREXATE [Concomitant]
     Dosage: 15 MG, WEEKLY (1/W)
     Route: 048
     Dates: start: 20010320
  4. FOLIC ACID [Concomitant]
     Dosage: 1 MG, UNKNOWN
  5. DONEPEZIL HCL [Concomitant]
     Dosage: 10 MG, UNKNOWN
  6. HYDROCODONE BITARTRATE AND ACETAMINOPHEN [Concomitant]
  7. ACETYLSALICYLIC ACID SRT [Concomitant]
     Dosage: 81 MG, UNKNOWN

REACTIONS (4)
  - BRONCHOSTENOSIS [None]
  - CARDIAC FAILURE CONGESTIVE [None]
  - INTERSTITIAL LUNG DISEASE [None]
  - PNEUMONIA [None]
